FAERS Safety Report 11139656 (Version 1)
Quarter: 2015Q2

REPORT INFORMATION
  Report Type: Spontaneous
  Country: US (occurrence: US)
  Receive Date: 20150527
  Receipt Date: 20150527
  Transmission Date: 20150821
  Serious: No
  Sender: FDA-Public Use
  Company Number: US-MALLINCKRODT-QSC-2014-0876

PATIENT
  Sex: Female

DRUGS (8)
  1. DEXAMETHASONE. [Concomitant]
     Active Substance: DEXAMETHASONE
     Dosage: UNK
  2. IVIGLOB EX [Concomitant]
     Active Substance: HUMAN IMMUNOGLOBULIN G
     Dosage: UNK
  3. H.P. ACTHAR [Suspect]
     Active Substance: CORTICOTROPIN
     Indication: OPSOCLONUS MYOCLONUS
     Dosage: UNK
     Route: 030
     Dates: start: 201306, end: 201312
  4. H.P. ACTHAR [Suspect]
     Active Substance: CORTICOTROPIN
     Dosage: 0.36 ML, QD
     Route: 030
     Dates: start: 201410
  5. PENTAMIDINE [Concomitant]
     Active Substance: PENTAMIDINE
     Dosage: UNK
  6. CYTOXAN [Concomitant]
     Active Substance: CYCLOPHOSPHAMIDE
     Dosage: UNK
  7. RANITIDINE [Concomitant]
     Active Substance: RANITIDINE\RANITIDINE HYDROCHLORIDE
     Dosage: UNK
  8. H.P. ACTHAR [Suspect]
     Active Substance: CORTICOTROPIN
     Dosage: 0.11 ML QOD
     Route: 030
     Dates: start: 201312, end: 201410

REACTIONS (4)
  - Drug ineffective [Unknown]
  - Expired product administered [Not Recovered/Not Resolved]
  - Opsoclonus myoclonus [Unknown]
  - Condition aggravated [Unknown]

NARRATIVE: CASE EVENT DATE: 2014
